FAERS Safety Report 25523498 (Version 1)
Quarter: 2025Q3

REPORT INFORMATION
  Report Type: Spontaneous
  Country: US (occurrence: US)
  Receive Date: 20250707
  Receipt Date: 20250707
  Transmission Date: 20251021
  Serious: No
  Sender: ELI LILLY AND COMPANY
  Company Number: US-ELI_LILLY_AND_COMPANY-US202507001038

PATIENT
  Age: 54 Year
  Sex: Female

DRUGS (2)
  1. INSULIN LISPRO [Suspect]
     Active Substance: INSULIN LISPRO
     Indication: Diabetes mellitus
     Dosage: 36 U, DAILY
     Route: 058
     Dates: start: 20231220
  2. SOLOSTAR [Concomitant]
     Active Substance: DEVICE
     Indication: Diabetes mellitus
     Dosage: 27 U, EACH EVENING
     Dates: start: 20231220

REACTIONS (2)
  - Vertigo [Unknown]
  - Memory impairment [Unknown]
